FAERS Safety Report 5517635-5 (Version None)
Quarter: 2007Q4

REPORT INFORMATION
  Report Type: 
  Country: None (occurrence: None)
  Receive Date: 20071114
  Receipt Date: 20071113
  Transmission Date: 20080405
  Serious: Yes (Other)
  Sender: FDA-Public Use
  Company Number: FR-ROXANE LABORATORIES, INC-2007-BP-24375RO

PATIENT
  Age: 13 Year
  Sex: Female
  Weight: 55 kg

DRUGS (5)
  1. LIDOCAINE [Suspect]
     Indication: LOCAL ANAESTHESIA
  2. EPINEPHRINE [Suspect]
     Indication: LOCAL ANAESTHESIA
  3. ROPIVACAINE [Suspect]
     Indication: LOCAL ANAESTHESIA
  4. SEVOFLURANE [Concomitant]
     Indication: GENERAL ANAESTHESIA
     Route: 055
  5. NITROUS OXIDE [Concomitant]
     Indication: GENERAL ANAESTHESIA
     Route: 055

REACTIONS (5)
  - ARRHYTHMIA [None]
  - BLOOD PRESSURE INCREASED [None]
  - OXYGEN SATURATION DECREASED [None]
  - THERAPEUTIC AGENT TOXICITY [None]
  - VENTRICULAR ARRHYTHMIA [None]
